FAERS Safety Report 21749391 (Version 2)
Quarter: 2022Q4

REPORT INFORMATION
  Report Type: Spontaneous
  Country: DE (occurrence: DE)
  Receive Date: 20221219
  Receipt Date: 20221231
  Transmission Date: 20230112
  Serious: Yes (Hospitalization)
  Sender: FDA-Public Use
  Company Number: DE-009507513-2212DEU001817

PATIENT
  Age: 56 Year
  Sex: Female
  Weight: 50 kg

DRUGS (15)
  1. CARBOPLATIN [Suspect]
     Active Substance: CARBOPLATIN
     Indication: Non-small cell lung cancer
     Dosage: 530 MG, FIRST LINE
     Route: 065
     Dates: start: 20220721, end: 20220810
  2. PEMETREXED [Suspect]
     Active Substance: PEMETREXED
     Indication: Non-small cell lung cancer
     Dosage: 760 MG, FIRST LINE
     Route: 065
     Dates: start: 20220630, end: 20220921
  3. PEMBROLIZUMAB [Suspect]
     Active Substance: PEMBROLIZUMAB
     Indication: Non-small cell lung cancer
     Dosage: 200 MILLIGRAM, FIRST LINE; PHARMACEUTICAL FORM (DOSAGE FORM): SOLUTION FOR INJECTION
     Route: 065
     Dates: start: 20220606, end: 20220921
  4. VITAMIN B12 [Concomitant]
     Active Substance: CYANOCOBALAMIN
     Indication: Product used for unknown indication
     Dosage: 1 MG (1MG S.C. (EVERY 9 WEEKS))
     Route: 058
     Dates: end: 20220713
  5. PANTOPRAZOLE [Concomitant]
     Active Substance: PANTOPRAZOLE
     Indication: Product used for unknown indication
     Dosage: 40 MG, QD (0-0-1-0)
     Route: 065
  6. FOLIC ACID [Concomitant]
     Active Substance: FOLIC ACID
     Indication: Product used for unknown indication
     Dosage: 0.4 MG, QD (0-0-1-0)
     Route: 065
  7. MCP [Concomitant]
     Active Substance: METOCLOPRAMIDE HYDROCHLORIDE
     Indication: Product used for unknown indication
     Dosage: UNK UNK, BID (1-0-1-0)
     Route: 065
  8. NEULASTA [Concomitant]
     Active Substance: PEGFILGRASTIM
     Indication: Product used for unknown indication
     Dosage: 6 MG
     Route: 065
     Dates: start: 20220701, end: 20220701
  9. GRANISETRON [Concomitant]
     Active Substance: GRANISETRON
     Indication: Product used for unknown indication
     Dosage: 1 MG (TOTAL), 1MG SHORT INFUSION, ONCE
     Route: 065
     Dates: start: 20220901, end: 20220901
  10. OPIPRAMOL [Concomitant]
     Active Substance: OPIPRAMOL
     Indication: Product used for unknown indication
     Dosage: 150 MG, QD, 50 MILLIGRAM, TID (1-1-1-0)
     Route: 065
  11. DEXAMETHASONE [Concomitant]
     Active Substance: DEXAMETHASONE
     Indication: Product used for unknown indication
     Dosage: 4 MG, QD, 2 MILLIGRAM, BID, (2MG-0-2MG-0)
     Route: 065
     Dates: start: 20220831, end: 20220831
  12. DEXAMETHASONE [Concomitant]
     Active Substance: DEXAMETHASONE
     Dosage: 8 MG, ONCE/SINGLE, 8MG, SHORT INFUSION, ONCE
     Route: 065
     Dates: start: 20220901, end: 20220901
  13. DEXAMETHASONE [Concomitant]
     Active Substance: DEXAMETHASONE
     Dosage: 4 MG, QD, 4 MILLIGRAM, QD (0-0-4MG-0)
     Route: 065
     Dates: start: 20220901, end: 20220901
  14. DEXAMETHASONE [Concomitant]
     Active Substance: DEXAMETHASONE
     Dosage: 8 MG, QD, 4 MILLIGRAM, BID (4MG-0-4MG-0)
     Route: 065
     Dates: start: 20220902, end: 20220902
  15. DEXAMETHASONE [Concomitant]
     Active Substance: DEXAMETHASONE
     Dosage: 2 MG, QD, 2 MILLIGRAM, QD (1-0-0) AS PERMANENT IMMUNE SUPRESSION
     Route: 065
     Dates: start: 2022, end: 2022

REACTIONS (1)
  - Herpes zoster [Recovered/Resolved]

NARRATIVE: CASE EVENT DATE: 20220905
